FAERS Safety Report 5003178-4 (Version None)
Quarter: 2006Q2

REPORT INFORMATION
  Report Type: 
  Country: None (occurrence: None)
  Receive Date: 20060510
  Receipt Date: 20060427
  Transmission Date: 20061013
  Serious: Yes (Other)
  Sender: FDA-Public Use
  Company Number: CHNY2006AU01337

PATIENT
  Age: 21 Year
  Sex: Male

DRUGS (1)
  1. ALPHAPHARM QUITX                           (NICOTINE) [Suspect]
     Indication: SMOKING CESSATION THERAPY
     Dosage: 21 MG, QD, TRANSDERMAL
     Route: 062
     Dates: start: 20060420, end: 20060421

REACTIONS (5)
  - FEELING ABNORMAL [None]
  - LOSS OF CONSCIOUSNESS [None]
  - MALAISE [None]
  - TREMOR [None]
  - VOMITING [None]
